FAERS Safety Report 15202410 (Version 1)
Quarter: 2018Q3

REPORT INFORMATION
  Report Type: Report from Study
  Country: IT (occurrence: IT)
  Receive Date: 20180726
  Receipt Date: 20180726
  Transmission Date: 20181010
  Serious: Yes (Other)
  Sender: FDA-Public Use
  Company Number: IT-MYLANLABS-2018M1054850

PATIENT
  Age: 51 Year
  Sex: Female

DRUGS (2)
  1. CANRENONE [Suspect]
     Active Substance: CANRENONE
     Indication: PRODUCT USED FOR UNKNOWN INDICATION
     Route: 065
  2. ATORVASTATIN [Suspect]
     Active Substance: ATORVASTATIN
     Indication: PRODUCT USED FOR UNKNOWN INDICATION
     Route: 065

REACTIONS (4)
  - Psychomotor hyperactivity [Recovering/Resolving]
  - Intentional self-injury [Recovering/Resolving]
  - Incorrect dosage administered [Recovering/Resolving]
  - Prescription drug used without a prescription [Recovering/Resolving]
